FAERS Safety Report 9645251 (Version 1)
Quarter: 2013Q4

REPORT INFORMATION
  Report Type: Spontaneous
  Country: US (occurrence: None)
  Receive Date: 20131023
  Receipt Date: 20131023
  Transmission Date: 20140711
  Serious: Yes (Life-Threatening, Hospitalization, Other)
  Sender: FDA-Public Use
  Company Number: None

PATIENT
  Age: 25 Year
  Sex: Male
  Weight: 155.2 kg

DRUGS (6)
  1. VIMPAT [Suspect]
     Indication: CONVULSION
     Dates: start: 201309, end: 20131001
  2. PREVACID [Concomitant]
  3. BYSTOLIC [Concomitant]
  4. LOSARTAN [Concomitant]
  5. LAMOTRIGINE [Concomitant]
  6. TYLENOL [Concomitant]

REACTIONS (4)
  - Muscular weakness [None]
  - Abasia [None]
  - Blindness [None]
  - Convulsion [None]
